FAERS Safety Report 13853143 (Version 3)
Quarter: 2017Q4

REPORT INFORMATION
  Report Type: Report from Study
  Country: US (occurrence: US)
  Receive Date: 20170810
  Receipt Date: 20171013
  Transmission Date: 20180320
  Serious: Yes (Life-Threatening, Hospitalization, Other)
  Sender: FDA-Public Use
  Company Number: US-GILEAD-2017-0287523

PATIENT
  Age: 63 Year
  Sex: Male
  Weight: 105.7 kg

DRUGS (19)
  1. METHOTREXATE SODIUM. [Concomitant]
     Active Substance: METHOTREXATE SODIUM
  2. AMBRISENTAN [Suspect]
     Active Substance: AMBRISENTAN
     Indication: SCLERODERMA
     Dosage: 5 MG, UNK
     Route: 048
     Dates: start: 20171013
  3. GABAPENTIN. [Concomitant]
     Active Substance: GABAPENTIN
  4. ADVAIR HFA [Concomitant]
     Active Substance: FLUTICASONE PROPIONATE\SALMETEROL XINAFOATE
  5. AMBIEN [Concomitant]
     Active Substance: ZOLPIDEM TARTRATE
  6. IGG [Concomitant]
     Active Substance: HUMAN IMMUNOGLOBULIN G
  7. LISINOPRIL. [Concomitant]
     Active Substance: LISINOPRIL
  8. AMBRISENTAN [Suspect]
     Active Substance: AMBRISENTAN
     Indication: PULMONARY HYPERTENSION
     Dosage: 10 MG, QD
     Route: 048
     Dates: start: 20170712, end: 20171012
  9. IMMUNE GLOBULIN [Concomitant]
     Active Substance: HUMAN IMMUNOGLOBULIN G
  10. VITAMIN D3 [Concomitant]
     Active Substance: CHOLECALCIFEROL
  11. ADCIRCA [Suspect]
     Active Substance: TADALAFIL
     Indication: PRODUCT USED FOR UNKNOWN INDICATION
     Dosage: UNK
     Route: 065
  12. DOCUSATE SODIUM. [Concomitant]
     Active Substance: DOCUSATE SODIUM
  13. METOPROLOL XL SANDOZ [Concomitant]
     Active Substance: METOPROLOL SUCCINATE
  14. NIFEDIPINE. [Concomitant]
     Active Substance: NIFEDIPINE
  15. TORSEMIDE. [Concomitant]
     Active Substance: TORSEMIDE
  16. FLUOXETINE [Concomitant]
     Active Substance: FLUOXETINE HYDROCHLORIDE
  17. MULTIVITAMIN                       /00097801/ [Concomitant]
     Active Substance: VITAMINS
  18. VITAMIN B12 [Concomitant]
     Active Substance: CYANOCOBALAMIN
  19. PROTONIX                           /00661201/ [Concomitant]
     Active Substance: OMEPRAZOLE

REACTIONS (13)
  - Blood pressure decreased [Unknown]
  - Oedema peripheral [Unknown]
  - Intestinal obstruction [Recovered/Resolved]
  - Fluid retention [Recovered/Resolved]
  - Dehydration [Recovered/Resolved]
  - Acute respiratory failure [Unknown]
  - Pulmonary oedema [Recovered/Resolved]
  - Dyspnoea [Recovered/Resolved]
  - Acute kidney injury [Unknown]
  - Left ventricular failure [Unknown]
  - Pericardial effusion [Recovered/Resolved]
  - Renal failure [Recovered/Resolved]
  - Pancytopenia [Unknown]

NARRATIVE: CASE EVENT DATE: 20170727
